FAERS Safety Report 9876971 (Version 1)
Quarter: 2014Q1

REPORT INFORMATION
  Report Type: Spontaneous
  Country: GB (occurrence: None)
  Receive Date: 20140204
  Receipt Date: 20140204
  Transmission Date: 20141002
  Serious: Yes (Hospitalization, Other)
  Sender: FDA-Public Use
  Company Number: AUR-APL-2014-01082

PATIENT
  Age: 58 Year
  Sex: Male

DRUGS (3)
  1. RIBAVIRIN [Suspect]
     Indication: HEPATITIS C
     Dosage: 1 D
     Route: 048
     Dates: start: 20130710, end: 20130828
  2. INCIVO [Suspect]
     Indication: HEPATITIS C
     Dosage: 750 MG, 3 IN 1 D
     Route: 048
     Dates: start: 20130710, end: 20131002
  3. PEGINTERFERON ALFA-2A [Suspect]
     Indication: HEPATITIS C
     Route: 058
     Dates: start: 20130710, end: 20131226

REACTIONS (6)
  - Leukopenia [None]
  - Off label use [None]
  - Anaemia [None]
  - Renal impairment [None]
  - Platelet count decreased [None]
  - Blood bilirubin abnormal [None]
